FAERS Safety Report 8049447-5 (Version None)
Quarter: 2011Q4

REPORT INFORMATION
  Report Type: 
  Country: None (occurrence: None)
  Receive Date: 20111228
  Receipt Date: 20111219
  Transmission Date: 20120403
  Serious: Yes (Other)
  Sender: FDA-Public Use
  Company Number: 2011030600

PATIENT
  Age: 27 Day
  Sex: Female
  Weight: 4 kg

DRUGS (1)
  1. PRIVIGEN [Suspect]
     Indication: HEART DISEASE CONGENITAL
     Dosage: (INTRAVENOUS (NOT OTHERWISE SPECIFIED))
     Route: 042
     Dates: start: 20110101

REACTIONS (5)
  - HYPOTENSION [None]
  - INFUSION RELATED REACTION [None]
  - PRODUCT SUBSTITUTION ISSUE [None]
  - SKIN DISCOLOURATION [None]
  - BRADYCARDIA [None]
